FAERS Safety Report 5920939-5 (Version None)
Quarter: 2008Q4

REPORT INFORMATION
  Report Type: 
  Country: None (occurrence: None)
  Receive Date: 20081016
  Receipt Date: 20081008
  Transmission Date: 20090506
  Serious: Yes (Hospitalization)
  Sender: FDA-Public Use
  Company Number: SG-GILEAD-2008-0018253

PATIENT
  Sex: Male
  Weight: 49 kg

DRUGS (6)
  1. TRUVADA [Suspect]
     Indication: HIV INFECTION
     Route: 048
     Dates: start: 20060622, end: 20080923
  2. TRUVADA [Suspect]
     Dates: start: 20060602, end: 20060616
  3. KALETRA [Suspect]
     Indication: HIV INFECTION
     Route: 048
     Dates: start: 20060622, end: 20080923
  4. KALETRA [Suspect]
     Dates: start: 20060602, end: 20060616
  5. PARA-SELTZER [Suspect]
  6. BETNOVATE [Concomitant]
     Indication: PRURITUS
     Dates: start: 20060630

REACTIONS (1)
  - CHEST PAIN [None]
